FAERS Safety Report 24377169 (Version 3)
Quarter: 2024Q4

REPORT INFORMATION
  Report Type: Report from Study
  Country: GB (occurrence: GB)
  Receive Date: 20240930
  Receipt Date: 20241128
  Transmission Date: 20250115
  Serious: Yes (Other)
  Sender: ABBVIE
  Company Number: GB-ABBVIE-5940258

PATIENT
  Age: 78 Year
  Sex: Male

DRUGS (9)
  1. CARBIDOPA\LEVODOPA [Suspect]
     Active Substance: CARBIDOPA\LEVODOPA
     Indication: Parkinson^s disease
     Dosage: 20MG/5MG, MD= 10.6, CR= 4.5, ED= 2.4
     Route: 050
  2. CARBIDOPA\LEVODOPA [Suspect]
     Active Substance: CARBIDOPA\LEVODOPA
     Dosage: 20MG/5MG, MD= 10.6, CR= 4.7, ED= 2.4
     Route: 050
  3. BENSERAZIDE HYDROCHLORIDE\LEVODOPA [Concomitant]
     Active Substance: BENSERAZIDE HYDROCHLORIDE\LEVODOPA
     Indication: Parkinson^s disease
     Dosage: 100/25MGS
     Route: 048
  4. BENSERAZIDE HYDROCHLORIDE\LEVODOPA [Concomitant]
     Active Substance: BENSERAZIDE HYDROCHLORIDE\LEVODOPA
     Indication: Parkinson^s disease
     Dosage: 100/25MGS, 2200 MG?FREQUENCY TEXT: X1 2200
     Route: 048
  5. BENSERAZIDE HYDROCHLORIDE\LEVODOPA [Concomitant]
     Active Substance: BENSERAZIDE HYDROCHLORIDE\LEVODOPA
     Indication: Parkinson^s disease
     Dosage: 50/12.5MGS, 600 MG?FREQUENCY TEXT: X1 0600
     Route: 048
  6. BENSERAZIDE HYDROCHLORIDE\LEVODOPA [Concomitant]
     Active Substance: BENSERAZIDE HYDROCHLORIDE\LEVODOPA
     Indication: Parkinson^s disease
     Dosage: 100/25MGS, 600 MG?FREQUENCY TEXT: X1 0600
     Route: 048
  7. AMANTADINE [Concomitant]
     Active Substance: AMANTADINE
     Indication: Parkinson^s disease
     Dosage: FREQUENCY TEXT: X1 0600
     Route: 048
  8. BENSERAZIDE HYDROCHLORIDE\LEVODOPA [Concomitant]
     Active Substance: BENSERAZIDE HYDROCHLORIDE\LEVODOPA
     Indication: Parkinson^s disease
     Dosage: 50/12.5 MGS
     Route: 048
  9. BENSERAZIDE HYDROCHLORIDE\LEVODOPA [Concomitant]
     Active Substance: BENSERAZIDE HYDROCHLORIDE\LEVODOPA
     Indication: Parkinson^s disease
     Dosage: 50/12.5 MGS FREQUENCY TEXT: X2 0700
     Route: 048

REACTIONS (21)
  - Cerebral haemorrhage [Unknown]
  - Balance disorder [Unknown]
  - Poor quality sleep [Unknown]
  - Stoma site infection [Recovered/Resolved]
  - Depression [Not Recovered/Not Resolved]
  - Weight decreased [Recovered/Resolved]
  - Stoma site discharge [Recovered/Resolved]
  - Anxiety [Unknown]
  - Nocturia [Unknown]
  - Freezing phenomenon [Not Recovered/Not Resolved]
  - Fall [Not Recovered/Not Resolved]
  - Dystonia [Not Recovered/Not Resolved]
  - Stoma site complication [Recovered/Resolved]
  - Dyskinesia [Not Recovered/Not Resolved]
  - Depressed mood [Not Recovered/Not Resolved]
  - Gait disturbance [Unknown]
  - Abnormal dreams [Not Recovered/Not Resolved]
  - Fall [Recovered/Resolved]
  - Middle insomnia [Unknown]
  - Thinking abnormal [Unknown]
  - Slow speech [Unknown]

NARRATIVE: CASE EVENT DATE: 20240101
